FAERS Safety Report 6072796-7 (Version None)
Quarter: 2009Q1

REPORT INFORMATION
  Report Type: 
  Country: None (occurrence: None)
  Receive Date: 20090205
  Receipt Date: 20090129
  Transmission Date: 20090719
  Serious: No
  Sender: FDA-Public Use
  Company Number: 20096161

PATIENT
  Sex: Male

DRUGS (1)
  1. LIORESAL [Suspect]
     Indication: MUSCLE SPASTICITY
     Dosage: DAILY, INTRATHECAL
     Route: 037
     Dates: start: 20090121

REACTIONS (3)
  - CATHETER SITE CELLULITIS [None]
  - CELLULITIS [None]
  - COMPLICATION OF DEVICE INSERTION [None]
